FAERS Safety Report 24247856 (Version 1)
Quarter: 2024Q3

REPORT INFORMATION
  Report Type: Report from Study
  Country: AU (occurrence: AU)
  Receive Date: 20240826
  Receipt Date: 20240826
  Transmission Date: 20241017
  Serious: Yes (Other)
  Sender: TEVA
  Company Number: AU-Pharmaand-2024000677

PATIENT
  Age: 20 Year
  Sex: Male

DRUGS (2)
  1. RIBOMUSTIN [Suspect]
     Active Substance: BENDAMUSTINE HYDROCHLORIDE
     Indication: Hodgkin^s disease recurrent
     Dosage: 174 MG D1 AND D2 EVERY 21 DAYS (174 MG)
     Route: 042
  2. RIBOMUSTIN [Suspect]
     Active Substance: BENDAMUSTINE HYDROCHLORIDE
     Indication: Hodgkin^s disease recurrent
     Dosage: DAYS 1 AND 2 EVERY 21 DAYS, 190 (190 MG)
     Route: 042

REACTIONS (3)
  - Hodgkin^s disease recurrent [Recovered/Resolved]
  - No adverse event [Recovered/Resolved]
  - Off label use [Recovered/Resolved]
